FAERS Safety Report 4320514-2 (Version None)
Quarter: 2004Q1

REPORT INFORMATION
  Report Type: 
  Country: None (occurrence: None)
  Receive Date: 20040317
  Receipt Date: 20040226
  Transmission Date: 20041129
  Serious: Yes (Hospitalization)
  Sender: FDA-Public Use
  Company Number: 98P-083-0159126-00

PATIENT
  Age: 55 Year
  Sex: Female

DRUGS (4)
  1. TRANDOLAPRIL/VERAPAMIL [Suspect]
     Indication: HYPERTENSION
     Dosage: 1 CAPSULE DAILY, ORAL
     Route: 048
     Dates: start: 19970925
  2. ESIDRIX [Concomitant]
  3. TOTALIP/ATORVASTATIVE () [Concomitant]
  4. GLUCOBAY [Concomitant]

REACTIONS (1)
  - NO ADVERSE DRUG EFFECT [None]
